FAERS Safety Report 5040323-9 (Version None)
Quarter: 2006Q2

REPORT INFORMATION
  Report Type: 
  Country: None (occurrence: None)
  Receive Date: 20060630
  Receipt Date: 20060515
  Transmission Date: 20061013
  Serious: No
  Sender: FDA-Public Use
  Company Number: US-BRISTOL-MYERS SQUIBB COMPANY-13377890

PATIENT
  Age: 59 Year
  Sex: Female
  Weight: 89 kg

DRUGS (10)
  1. ORENCIA [Suspect]
     Indication: RHEUMATOID ARTHRITIS
     Route: 042
     Dates: start: 20060503
  2. SULFASALAZINE [Concomitant]
  3. PREDNISONE [Concomitant]
  4. CRESTOR [Concomitant]
  5. FLOVENT [Concomitant]
  6. CELEXA [Concomitant]
  7. PRILOSEC [Concomitant]
  8. CALCIUM + VITAMIN D [Concomitant]
  9. FISH OIL [Concomitant]
  10. VITAMINS [Concomitant]

REACTIONS (1)
  - DYSPNOEA [None]
